FAERS Safety Report 6119726-7 (Version None)
Quarter: 2009Q1

REPORT INFORMATION
  Report Type: 
  Country: None (occurrence: None)
  Receive Date: 20090316
  Receipt Date: 20090303
  Transmission Date: 20090719
  Serious: Yes (Other)
  Sender: FDA-Public Use
  Company Number: US-MERCK-0903USA01337

PATIENT
  Sex: Female

DRUGS (2)
  1. ZETIA [Suspect]
     Indication: BLOOD CHOLESTEROL
     Route: 048
  2. STATIN (UNSPECIFIED) [Concomitant]
     Route: 048

REACTIONS (2)
  - ARTERIAL DISORDER [None]
  - CHEST PAIN [None]
